FAERS Safety Report 11837205 (Version 1)
Quarter: 2015Q4

REPORT INFORMATION
  Report Type: Spontaneous
  Country: US (occurrence: US)
  Receive Date: 20151215
  Receipt Date: 20151215
  Transmission Date: 20160305
  Serious: No
  Sender: FDA-Public Use
  Company Number: US-PFIZER INC-2015422058

PATIENT
  Age: 69 Year
  Sex: Female

DRUGS (15)
  1. EMLA [Concomitant]
     Active Substance: LIDOCAINE\PRILOCAINE
     Dosage: THICK COATING TO PORT 60-90 MINUTES BEFORE TREATMENT
  2. NOLVADEX [Concomitant]
     Active Substance: TAMOXIFEN CITRATE
     Dosage: 20 MG, 1X/DAY
     Route: 048
  3. VITAMIN C [Concomitant]
     Active Substance: ASCORBIC ACID
     Dosage: 500 MG, DAILY
     Route: 048
  4. VITAMIN D3 [Concomitant]
     Active Substance: CHOLECALCIFEROL
     Dosage: 1000 IU, DAILY
     Route: 048
  5. SYNTHROID [Concomitant]
     Active Substance: LEVOTHYROXINE SODIUM
     Dosage: 75 UG, DAILY 30 MINUTES TO 1 HOUR BEFORE BREAKFAST
     Route: 048
  6. OSCAL [Concomitant]
     Active Substance: CALCIUM CARBONATE
     Dosage: 250-125 MG, (1 TABLET DAILY)
     Route: 048
  7. COLACE [Concomitant]
     Active Substance: DOCUSATE SODIUM
     Indication: CONSTIPATION
     Dosage: 100 MG, AS NEEDED (TAKE 1 CAPSULE BY MOUTH 2 TIMES DAILY AS NEEDED)
     Route: 048
  8. FERROUS SULFATE [Concomitant]
     Active Substance: FERROUS SULFATE\FERROUS SULFATE, DRIED
     Dosage: 325 MG, DAILY WITH BREAKFAST
     Route: 048
  9. IBRANCE [Suspect]
     Active Substance: PALBOCICLIB
     Indication: BREAST CANCER METASTATIC
     Dosage: 125 MG, CYCLIC (TAKE 1 CAPSULE BY MOUTH DAILY X 21 DAYS FOLLOWED BY 7 DAY BREAK)
     Route: 048
  10. TAMOXIFEN CITRATE. [Suspect]
     Active Substance: TAMOXIFEN CITRATE
     Dosage: 20 MG, DAILY
     Route: 048
     Dates: start: 20150318, end: 20151123
  11. NEXIUM [Concomitant]
     Active Substance: ESOMEPRAZOLE MAGNESIUM
     Dosage: 40 MG, 1X/DAY (EVERY MORNING BEFORE BREAKFAST)
     Route: 048
  12. RISPERDAL [Concomitant]
     Active Substance: RISPERIDONE
     Indication: INSOMNIA
     Dosage: 0.5 MG, AS NEEDED (NIGHTLY)
     Route: 048
  13. VITAMIN E-400 [Concomitant]
     Dosage: 400 IU, DAILY
     Route: 048
  14. PRAVACHOL [Concomitant]
     Active Substance: PRAVASTATIN SODIUM
     Dosage: 40 MG, DAILY
     Route: 048
  15. EFFEXOR XR [Concomitant]
     Active Substance: VENLAFAXINE HYDROCHLORIDE
     Dosage: 225 MG, DAILY
     Route: 048

REACTIONS (5)
  - Disease progression [Unknown]
  - Blood bilirubin decreased [Unknown]
  - Blood chloride increased [Unknown]
  - Breast cancer metastatic [Unknown]
  - Red blood cell count decreased [Unknown]
